FAERS Safety Report 23054858 (Version 3)
Quarter: 2023Q4

REPORT INFORMATION
  Report Type: Spontaneous
  Country: US (occurrence: US)
  Receive Date: 20231011
  Receipt Date: 20231229
  Transmission Date: 20240109
  Serious: Yes (Hospitalization, Disabling, Other)
  Sender: FDA-Public Use
  Company Number: None

PATIENT
  Age: 42 Year
  Sex: Male
  Weight: 125 kg

DRUGS (4)
  1. LIDOCAINE HYDROCHLORIDE [Suspect]
     Active Substance: DEXTROSE MONOHYDRATE\EPINEPHRINE\EPINEPHRINE BITARTRATE\LIDOCAINE\LIDOCAINE HYDROCHLORIDE\LIDOCAINE
     Indication: Skin papilloma
     Dosage: 1:1 RATIO OF 1% LIDOCAINE AND EPINEPHRINE 1:100,000
     Route: 058
  2. EPINEPHRINE [Suspect]
     Active Substance: EPINEPHRINE
     Indication: Skin papilloma
     Dosage: 1:1 RATIO OF 1% LIDOCAINE AND EPINEPHRINE 1:100,000
     Route: 058
  3. NITROGEN [Suspect]
     Active Substance: NITROGEN
     Indication: Skin papilloma
     Dosage: TWO 5-10 S FREEZE-THAW CYCLES.
     Route: 061
  4. LISINOPRIL [Concomitant]
     Active Substance: LISINOPRIL
     Indication: Hypertension
     Dosage: 20 MILLIGRAM, QD

REACTIONS (4)
  - Injection site reaction [Recovered/Resolved]
  - Extremity necrosis [Recovered/Resolved]
  - Dry gangrene [Recovered/Resolved]
  - Drug interaction [Recovered/Resolved]
